FAERS Safety Report 6092273-7 (Version None)
Quarter: 2009Q1

REPORT INFORMATION
  Report Type: 
  Country: None (occurrence: None)
  Receive Date: 20090225
  Receipt Date: 20090220
  Transmission Date: 20090719
  Serious: Yes (Other)
  Sender: FDA-Public Use
  Company Number: B0555930A

PATIENT
  Age: 10 Year
  Sex: Female

DRUGS (4)
  1. RELENZA [Suspect]
     Indication: INFLUENZA
     Dosage: 10MG TWICE PER DAY
     Route: 055
     Dates: start: 20090114, end: 20090118
  2. ASTOMIN [Concomitant]
     Dosage: 30MG PER DAY
     Route: 048
     Dates: start: 20090114, end: 20090118
  3. MUCODYNE [Concomitant]
     Dosage: 750MG PER DAY
     Route: 048
     Dates: start: 20090114, end: 20090118
  4. COCARL [Concomitant]
     Route: 048

REACTIONS (3)
  - ABNORMAL BEHAVIOUR [None]
  - FEELING HOT [None]
  - HALLUCINATION [None]
